FAERS Safety Report 4340743-1 (Version None)
Quarter: 2004Q2

REPORT INFORMATION
  Report Type: 
  Country: None (occurrence: None)
  Receive Date: 20040414
  Receipt Date: 20040325
  Transmission Date: 20050107
  Serious: Yes (Hospitalization)
  Sender: FDA-Public Use
  Company Number: A02200401077

PATIENT
  Age: 73 Year
  Sex: Female

DRUGS (4)
  1. KERLONE [Suspect]
     Dosage: 20 MG OD, 100 MG OD ORAL
     Route: 048
     Dates: end: 20040213
  2. LORAZEPAM [Concomitant]
  3. PARIET           (RABEPRAZOLE SODIUM) [Concomitant]
  4. ALDACTONE [Suspect]
     Indication: DRUG USE FOR UNKNOWN INDICATION
     Dosage: 100MD OD
     Route: 048

REACTIONS (23)
  - ASCITES [None]
  - BLOOD GLUCOSE INCREASED [None]
  - BODY TEMPERATURE DECREASED [None]
  - BRADYCARDIA [None]
  - CREPITATIONS [None]
  - DIALYSIS [None]
  - DRUG INTERACTION [None]
  - FALL [None]
  - HEART RATE DECREASED [None]
  - HEPATOMEGALY [None]
  - HYPERKALAEMIA [None]
  - HYPONATRAEMIA [None]
  - HYPOTENSION [None]
  - JAUNDICE [None]
  - MALAISE [None]
  - METABOLIC DISORDER [None]
  - MUSCULOSKELETAL STIFFNESS [None]
  - NEUROLOGICAL EXAMINATION ABNORMAL [None]
  - OEDEMA [None]
  - OEDEMA PERIPHERAL [None]
  - PLATELET COUNT DECREASED [None]
  - RHABDOMYOLYSIS [None]
  - WHITE BLOOD CELL COUNT INCREASED [None]
